FAERS Safety Report 13876207 (Version 12)
Quarter: 2023Q2

REPORT INFORMATION
  Report Type: Spontaneous
  Country: US (occurrence: US)
  Receive Date: 20170817
  Receipt Date: 20230420
  Transmission Date: 20230721
  Serious: No
  Sender: FDA-Public Use
  Company Number: US-PFIZER INC-2017242832

PATIENT
  Age: 15 Year
  Sex: Female

DRUGS (4)
  1. XELJANZ [Suspect]
     Active Substance: TOFACITINIB CITRATE
     Indication: Alopecia universalis
     Dosage: 5 MG, 2X/DAY
     Route: 048
     Dates: start: 201706
  2. XELJANZ [Suspect]
     Active Substance: TOFACITINIB CITRATE
     Indication: Alopecia areata
     Dosage: 10 MG, DAILY (TAB 5 MG /QTY 60/ DAY SUPPLY 30)
  3. XELJANZ [Suspect]
     Active Substance: TOFACITINIB CITRATE
     Indication: Alopecia totalis
     Dosage: 5 MG
  4. XELJANZ [Suspect]
     Active Substance: TOFACITINIB CITRATE
     Indication: Alopecia
     Dosage: 5 MG
     Dates: start: 20211223

REACTIONS (3)
  - Off label use [Unknown]
  - Drug effective for unapproved indication [Unknown]
  - Off label use [Unknown]

NARRATIVE: CASE EVENT DATE: 20170601
